FAERS Safety Report 4528495-3 (Version None)
Quarter: 2004Q4

REPORT INFORMATION
  Report Type: 
  Country: None (occurrence: None)
  Receive Date: 20041216
  Receipt Date: 20041116
  Transmission Date: 20050328
  Serious: No
  Sender: FDA-Public Use
  Company Number: 00700 040255

PATIENT
  Sex: Female

DRUGS (1)
  1. BUPRENORPHINE HCL [Suspect]
     Indication: DRUG USE FOR UNKNOWN INDICATION
     Dosage: DOSAGE UNKNOWN
     Route: 042

REACTIONS (2)
  - DRUG EXPOSURE DURING PREGNANCY [None]
  - INTRA-UTERINE DEATH [None]
